FAERS Safety Report 20045648 (Version 1)
Quarter: 2021Q4

REPORT INFORMATION
  Report Type: Spontaneous
  Country: US (occurrence: US)
  Receive Date: 20211108
  Receipt Date: 20211108
  Transmission Date: 20220303
  Serious: Yes (Hospitalization, Other)
  Sender: FDA-Public Use
  Company Number: US-ANIPHARMA-2021-US-023699

PATIENT
  Age: 84 Year
  Sex: Male

DRUGS (11)
  1. TRIAMTERENE AND HYDROCHLOROTHIAZIDE [Suspect]
     Active Substance: HYDROCHLOROTHIAZIDE\TRIAMTERENE
     Indication: Hypertension
  2. METHYLPREDNISOLONE [Concomitant]
     Active Substance: METHYLPREDNISOLONE
  3. CLINDAMYCIN [Concomitant]
     Active Substance: CLINDAMYCIN
  4. PRIMAQUINE [Suspect]
     Active Substance: PRIMAQUINE
     Indication: Pneumocystis jirovecii pneumonia
  5. AMIODARONE [Concomitant]
     Active Substance: AMIODARONE
  6. WARFARIN [Concomitant]
     Active Substance: WARFARIN
  7. EZETIMIBE [Concomitant]
     Active Substance: EZETIMIBE
  8. PREDNISONE [Concomitant]
     Active Substance: PREDNISONE
  9. METHOTREXATE [Concomitant]
     Active Substance: METHOTREXATE
  10. CEFEPIME [Concomitant]
     Active Substance: CEFEPIME HYDROCHLORIDE
  11. DOXYCYCLINE [Concomitant]
     Active Substance: DOXYCYCLINE

REACTIONS (2)
  - Methaemoglobinaemia [Recovered/Resolved]
  - Drug interaction [Recovered/Resolved]
